FAERS Safety Report 8890177 (Version 1)
Quarter: 2012Q4

REPORT INFORMATION
  Report Type: 
  Country: US (occurrence: US)
  Receive Date: 20121107
  Receipt Date: 20121107
  Transmission Date: 20130627
  Serious: Yes (Other)
  Sender: FDA-Public Use
  Company Number: US-PFIZER INC-2012274863

PATIENT
  Age: 52 Year
  Sex: Female
  Weight: 72.56 kg

DRUGS (3)
  1. TOVIAZ [Suspect]
     Indication: OVERACTIVE BLADDER
     Dosage: 4 mg, 1x/day
     Route: 048
     Dates: start: 20121024
  2. METOPROLOL [Concomitant]
     Indication: BLOOD PRESSURE HIGH
     Dosage: UNK
  3. METOPROLOL [Concomitant]
     Indication: HEART RATE ABNORMAL

REACTIONS (3)
  - Heart rate increased [Recovering/Resolving]
  - Feeling abnormal [Recovering/Resolving]
  - Wrong technique in drug usage process [Unknown]
